FAERS Safety Report 21622952 (Version 3)
Quarter: 2022Q4

REPORT INFORMATION
  Report Type: Spontaneous
  Country: US (occurrence: US)
  Receive Date: 20221121
  Receipt Date: 20221220
  Transmission Date: 20230113
  Serious: Yes (Hospitalization)
  Sender: FDA-Public Use
  Company Number: US-VIIV HEALTHCARE LIMITED-US2022AMR167746

PATIENT
  Age: 66 Year
  Sex: Male

DRUGS (8)
  1. RILPIVIRINE [Suspect]
     Active Substance: RILPIVIRINE
     Indication: HIV infection
     Dosage: UNK, 600/900 MCG EVERY TWO MONTHS
     Route: 030
     Dates: start: 2020
  2. RILPIVIRINE [Suspect]
     Active Substance: RILPIVIRINE
     Dosage: 3 ML 600 MG, Z EVERY 2 MONTHS
     Route: 030
     Dates: start: 20220913
  3. CABOTEGRAVIR [Suspect]
     Active Substance: CABOTEGRAVIR
     Indication: HIV infection
     Dosage: UNK, 600/900 MCG EVERY TWO MONTHS
     Route: 030
     Dates: start: 2020
  4. CABOTEGRAVIR [Suspect]
     Active Substance: CABOTEGRAVIR
     Dosage: 3 ML 600 MG, Z EVERY 2 MONTHS
     Route: 030
     Dates: start: 20220913
  5. AVAPRO [Concomitant]
     Active Substance: IRBESARTAN
     Indication: Product used for unknown indication
  6. NORVASC [Concomitant]
     Active Substance: AMLODIPINE BESYLATE
     Indication: Product used for unknown indication
  7. PROSCAR [Concomitant]
     Active Substance: FINASTERIDE
     Indication: Product used for unknown indication
  8. VITAMIN D3 [Concomitant]
     Active Substance: CHOLECALCIFEROL
     Indication: Product used for unknown indication

REACTIONS (2)
  - Hospitalisation [Recovered/Resolved]
  - Drug ineffective [Not Recovered/Not Resolved]
